FAERS Safety Report 19268324 (Version 1)
Quarter: 2021Q2

REPORT INFORMATION
  Report Type: Spontaneous
  Country: US (occurrence: US)
  Receive Date: 20210518
  Receipt Date: 20210518
  Transmission Date: 20210717
  Serious: Yes (Other)
  Sender: FDA-Public Use
  Company Number: US-PFIZER INC-2021493604

PATIENT
  Sex: Female

DRUGS (1)
  1. AQUASOL A [Suspect]
     Active Substance: VITAMIN A PALMITATE
     Indication: VITAMIN A DEFICIENCY

REACTIONS (2)
  - Visual impairment [Unknown]
  - Product supply issue [Unknown]
